FAERS Safety Report 6021625-6 (Version None)
Quarter: 2008Q4

REPORT INFORMATION
  Report Type: 
  Country: None (occurrence: None)
  Receive Date: 20081222
  Receipt Date: 20081210
  Transmission Date: 20090506
  Serious: Yes (Hospitalization)
  Sender: FDA-Public Use
  Company Number: PAR_02473_2008

PATIENT
  Age: 35 Year
  Sex: Female

DRUGS (1)
  1. CLOMIPHENE CITRATE [Suspect]
     Indication: INFERTILITY
     Dosage: (DF)

REACTIONS (6)
  - AGGRESSION [None]
  - AGITATION [None]
  - DELUSION [None]
  - IDEAS OF REFERENCE [None]
  - PARANOIA [None]
  - PSYCHOMOTOR HYPERACTIVITY [None]
